FAERS Safety Report 17698769 (Version 1)
Quarter: 2020Q2

REPORT INFORMATION
  Report Type: Spontaneous
  Country: US (occurrence: US)
  Receive Date: 20200423
  Receipt Date: 20200423
  Transmission Date: 20200714
  Serious: Yes (Other)
  Sender: FDA-Public Use
  Company Number: US-STRIDES ARCOLAB LIMITED-2020SP005019

PATIENT
  Age: 80 Year
  Sex: Male

DRUGS (2)
  1. GABAPENTIN. [Suspect]
     Active Substance: GABAPENTIN
     Indication: INITIAL INSOMNIA
     Dosage: UNK
     Route: 065
  2. ZOLPIDEM [Suspect]
     Active Substance: ZOLPIDEM TARTRATE
     Indication: INSOMNIA
     Dosage: UNK, HIGHER DOSES
     Route: 065

REACTIONS (7)
  - Gait disturbance [Unknown]
  - Fall [Unknown]
  - Drug ineffective [Unknown]
  - Accidental overdose [Unknown]
  - Confusional state [Recovered/Resolved]
  - Intentional product use issue [Unknown]
  - Memory impairment [Unknown]
